FAERS Safety Report 17051955 (Version 1)
Quarter: 2019Q4

REPORT INFORMATION
  Report Type: Spontaneous
  Country: US (occurrence: US)
  Receive Date: 20191120
  Receipt Date: 20191120
  Transmission Date: 20200122
  Serious: No
  Sender: FDA-Public Use
  Company Number: US-VISTAPHARM, INC.-VER201906-000337

PATIENT
  Sex: Female
  Weight: 54.43 kg

DRUGS (2)
  1. LACTULOSE. [Suspect]
     Active Substance: LACTULOSE
     Indication: GASTROINTESTINAL BACTERIAL OVERGROWTH
     Dosage: 10 G/15 ML
     Route: 048
     Dates: start: 20190531, end: 20190531
  2. LACTULOSE. [Suspect]
     Active Substance: LACTULOSE
     Dosage: 20 G/30 ML
     Route: 048
     Dates: start: 20190531, end: 20190531

REACTIONS (9)
  - Oral pruritus [Not Recovered/Not Resolved]
  - Dermatitis contact [Not Recovered/Not Resolved]
  - Abdominal discomfort [Unknown]
  - Flatulence [Unknown]
  - Paraesthesia oral [Not Recovered/Not Resolved]
  - Hypertension [Unknown]
  - Dyspepsia [Unknown]
  - Diarrhoea [Unknown]
  - Constipation [Unknown]
